FAERS Safety Report 17505815 (Version 4)
Quarter: 2022Q1

REPORT INFORMATION
  Report Type: Report from Study
  Country: CO (occurrence: CO)
  Receive Date: 20200306
  Receipt Date: 20220307
  Transmission Date: 20220423
  Serious: Yes (Life-Threatening, Hospitalization, Other)
  Sender: FDA-Public Use
  Company Number: CO-ABBVIE-20K-036-3304844-00

PATIENT
  Age: 65 Year
  Sex: Female
  Weight: 76 kg

DRUGS (2)
  1. HUMIRA [Suspect]
     Active Substance: ADALIMUMAB
     Indication: Psoriatic arthropathy
     Route: 058
     Dates: start: 20161119
  2. HUMIRA [Suspect]
     Active Substance: ADALIMUMAB
     Indication: Psoriatic arthropathy
     Dosage: LAST APPLICATION WAS ON 25 NOV 2021 DUE TO ADMINISTRATIVE PROBLEMS
     Route: 058
     Dates: start: 20211125, end: 20211125

REACTIONS (20)
  - Blood pressure decreased [Recovering/Resolving]
  - Lithiasis [Recovered/Resolved]
  - Haemorrhage urinary tract [Recovered/Resolved]
  - Cardiac arrest [Recovered/Resolved]
  - Blood pressure increased [Recovered/Resolved]
  - Haematuria [Recovered/Resolved]
  - Myocardial infarction [Recovered/Resolved]
  - Kidney infection [Recovered/Resolved]
  - Weight decreased [Not Recovered/Not Resolved]
  - Joint range of motion decreased [Unknown]
  - Discouragement [Not Recovered/Not Resolved]
  - Malaise [Not Recovered/Not Resolved]
  - Drug hypersensitivity [Unknown]
  - Anxiety [Not Recovered/Not Resolved]
  - Oropharyngeal pain [Not Recovered/Not Resolved]
  - Influenza [Not Recovered/Not Resolved]
  - Emotional distress [Unknown]
  - Psoriatic arthropathy [Recovering/Resolving]
  - Influenza [Recovered/Resolved]
  - Musculoskeletal discomfort [Recovering/Resolving]

NARRATIVE: CASE EVENT DATE: 20200101
